FAERS Safety Report 12166714 (Version 1)
Quarter: 2016Q1

REPORT INFORMATION
  Report Type: Spontaneous
  Country: GB (occurrence: GB)
  Receive Date: 20160310
  Receipt Date: 20160310
  Transmission Date: 20160526
  Serious: Yes (Death)
  Sender: FDA-Public Use
  Company Number: GB-ROCHE-1720055

PATIENT
  Age: 69 Year
  Sex: Female
  Weight: 82 kg

DRUGS (1)
  1. HERCEPTIN [Suspect]
     Active Substance: TRASTUZUMAB
     Indication: BREAST CANCER
     Route: 058
     Dates: start: 20150210, end: 20150908

REACTIONS (1)
  - Pulmonary fibrosis [Fatal]

NARRATIVE: CASE EVENT DATE: 20150920
